FAERS Safety Report 8302647-9 (Version None)
Quarter: 2012Q2

REPORT INFORMATION
  Report Type: 
  Country: None (occurrence: None)
  Receive Date: 20120420
  Receipt Date: 20120413
  Transmission Date: 20120825
  Serious: Yes (Hospitalization)
  Sender: FDA-Public Use
  Company Number: JP-BAYER-2012-018033

PATIENT
  Age: 73 Year
  Sex: Male
  Weight: 65 kg

DRUGS (5)
  1. SUNRYTHM [Concomitant]
     Indication: ATRIAL FIBRILLATION
     Dosage: DAILY DOSE 100 MG
     Route: 048
     Dates: start: 20071207, end: 20090828
  2. SIGMART [Concomitant]
     Indication: ATRIAL FIBRILLATION
     Dosage: DAILY DOSE 50 MG
     Dates: start: 20070101
  3. ASPIRIN [Suspect]
     Indication: ATRIAL FIBRILLATION
     Dosage: DAILY DOSE 100 MG
     Route: 048
     Dates: start: 20071207
  4. BAYLOTENSIN [Concomitant]
     Indication: HYPERTENSION
     Dosage: DAILY DOSE 10 MG
     Route: 048
     Dates: start: 20030403, end: 20101125
  5. FAMOTIDINE [Concomitant]
     Indication: GASTRITIS
     Dosage: DAILY DOSE 40 MG
     Route: 048
     Dates: start: 20011025, end: 20100528

REACTIONS (1)
  - VASCULAR PSEUDOANEURYSM [None]
